FAERS Safety Report 18102660 (Version 1)
Quarter: 2020Q3

REPORT INFORMATION
  Report Type: Spontaneous
  Country: JP (occurrence: JP)
  Receive Date: 20200803
  Receipt Date: 20200803
  Transmission Date: 20201103
  Serious: Yes (Hospitalization)
  Sender: FDA-Public Use
  Company Number: JP-TEVA-2020-JP-1809885

PATIENT
  Age: 28 Year
  Sex: Female
  Weight: 127 kg

DRUGS (2)
  1. QUETIAPINE. [Suspect]
     Active Substance: QUETIAPINE
     Dosage: 400 MILLIGRAM DAILY; ADDITIONAL 50MG
     Route: 065
  2. QUETIAPINE. [Suspect]
     Active Substance: QUETIAPINE
     Indication: MAJOR DEPRESSION
     Dosage: 300 MILLIGRAM DAILY; RECEIVING FOR 7 YEARS
     Route: 065

REACTIONS (5)
  - VIth nerve paralysis [Recovering/Resolving]
  - Idiopathic intracranial hypertension [Recovering/Resolving]
  - Weight increased [Recovering/Resolving]
  - Obesity [Recovering/Resolving]
  - Visual field defect [Recovering/Resolving]
